FAERS Safety Report 11922599 (Version 2)
Quarter: 2016Q1

REPORT INFORMATION
  Report Type: Report from Study
  Country: US (occurrence: US)
  Receive Date: 20160115
  Receipt Date: 20160205
  Transmission Date: 20160526
  Serious: Yes (Hospitalization)
  Sender: FDA-Public Use
  Company Number: US-PFIZER INC-2016006509

PATIENT
  Age: 38 Year
  Sex: Female

DRUGS (15)
  1. SINGULAIR [Concomitant]
     Active Substance: MONTELUKAST SODIUM
     Indication: RHINITIS
     Dosage: 10 MG, UNK
     Route: 048
     Dates: start: 20151016
  2. VENTOLIN [Concomitant]
     Active Substance: ALBUTEROL SULFATE
     Indication: RESPIRATORY FAILURE
     Dosage: 10 PUFFS
     Route: 045
     Dates: end: 20150923
  3. FAMOTIDINE. [Concomitant]
     Active Substance: FAMOTIDINE
     Indication: GASTROOESOPHAGEAL REFLUX DISEASE
     Dosage: 20 MG, UNK
     Route: 042
     Dates: end: 20150923
  4. DOCUSATE SODIUM. [Concomitant]
     Active Substance: DOCUSATE SODIUM
     Dosage: 200 MG, UNK
     Route: 042
     Dates: end: 20150923
  5. NAPROXEN. [Concomitant]
     Active Substance: NAPROXEN
     Indication: BACK PAIN
     Dosage: 650 MG, UNK
     Route: 048
     Dates: start: 2012
  6. CIPROFLOXACIN. [Concomitant]
     Active Substance: CIPROFLOXACIN
     Indication: RESPIRATORY FAILURE
     Dosage: 400 MG, UNK
     Route: 042
     Dates: end: 20150923
  7. PROPOFOL. [Concomitant]
     Active Substance: PROPOFOL
     Indication: RESPIRATORY FAILURE
     Dosage: 100 MG, UNK
     Route: 042
     Dates: end: 20150923
  8. DOCUSATE SODIUM. [Concomitant]
     Active Substance: DOCUSATE SODIUM
     Indication: CONSTIPATION
     Dosage: 100 MG, UNK
     Dates: start: 20151012
  9. FLONASE [Concomitant]
     Active Substance: FLUTICASONE PROPIONATE
     Indication: RHINITIS
     Dosage: 100 UG, UNK
     Route: 045
     Dates: start: 20150401
  10. SOLU-MEDROL [Suspect]
     Active Substance: METHYLPREDNISOLONE SODIUM SUCCINATE
     Indication: ACUTE RESPIRATORY FAILURE
     Dosage: 60 MG, UNK
     Route: 042
     Dates: start: 20150921, end: 20150923
  11. SYMBICORT [Concomitant]
     Active Substance: BUDESONIDE\FORMOTEROL FUMARATE DIHYDRATE
     Dosage: 2 PUFF (1 IN 2 WK)
     Dates: end: 20150923
  12. HYDROGEN PEROXIDE. [Concomitant]
     Active Substance: HYDROGEN PEROXIDE
     Indication: SUPPLEMENTATION THERAPY
     Dosage: 7 ML, UNK
     Route: 048
     Dates: end: 20150923
  13. ZOSYN [Suspect]
     Active Substance: PIPERACILLIN SODIUM\TAZOBACTAM SODIUM
     Indication: RESPIRATORY FAILURE
     Dosage: 4.5 G, UNK
     Route: 042
     Dates: start: 20150921, end: 20150922
  14. SINGULAIR [Concomitant]
     Active Substance: MONTELUKAST SODIUM
     Indication: MULTIPLE ALLERGIES
     Dosage: 10 MG, UNK
     Route: 048
     Dates: start: 2011
  15. ZANTAC [Concomitant]
     Active Substance: RANITIDINE HYDROCHLORIDE
     Indication: GASTROOESOPHAGEAL REFLUX DISEASE
     Dosage: 150 MG, UNK
     Route: 048
     Dates: start: 20140917

REACTIONS (5)
  - Myoclonus [Not Recovered/Not Resolved]
  - Asthenia [Not Recovered/Not Resolved]
  - Hallucination [Recovered/Resolved]
  - Psychogenic seizure [Not Recovered/Not Resolved]
  - Vulvovaginal candidiasis [Recovered/Resolved]

NARRATIVE: CASE EVENT DATE: 20150925
